FAERS Safety Report 4628155-4 (Version None)
Quarter: 2005Q2

REPORT INFORMATION
  Report Type: 
  Country: None (occurrence: None)
  Receive Date: 20050401
  Receipt Date: 20050324
  Transmission Date: 20051028
  Serious: Yes (Death, Hospitalization)
  Sender: FDA-Public Use
  Company Number: 05-02-0478

PATIENT
  Age: 60 Year
  Sex: Male
  Weight: 73.0291 kg

DRUGS (5)
  1. CLOZAPINE [Suspect]
     Indication: SCHIZOPHRENIA, DISORGANISED TYPE
     Dosage: 275MG QD ORAL
     Route: 048
     Dates: start: 19990901, end: 20050201
  2. DEPAKOTE [Suspect]
     Indication: AFFECTIVE DISORDER
     Dosage: 750MG TID
     Dates: end: 20050201
  3. DILANTIN [Concomitant]
  4. NEURONTIN [Concomitant]
  5. TOPROL-XL [Concomitant]

REACTIONS (2)
  - CHRONIC MYELOID LEUKAEMIA [None]
  - PNEUMONIA [None]
